FAERS Safety Report 6662363-6 (Version None)
Quarter: 2010Q1

REPORT INFORMATION
  Report Type: 
  Country: None (occurrence: None)
  Receive Date: 20100331
  Receipt Date: 20100323
  Transmission Date: 20100710
  Serious: No
  Sender: FDA-Public Use
  Company Number: US-ABBOTT-10P-163-0634515-00

PATIENT
  Sex: Female

DRUGS (2)
  1. LUPRON DEPOT [Suspect]
     Indication: DYSMENORRHOEA
     Dates: start: 20100223
  2. LUPRON DEPOT [Suspect]
     Indication: METRORRHAGIA

REACTIONS (1)
  - MUSCULOSKELETAL STIFFNESS [None]
